FAERS Safety Report 20239096 (Version 1)
Quarter: 2021Q4

REPORT INFORMATION
  Report Type: Spontaneous
  Country: US (occurrence: None)
  Receive Date: 20211227
  Receipt Date: 20211227
  Transmission Date: 20220303
  Serious: No
  Sender: FDA-Public Use
  Company Number: None

PATIENT
  Age: 43 Year
  Sex: Female
  Weight: 162.8 kg

DRUGS (1)
  1. BAMLANIVIMAB\ETESEVIMAB [Suspect]
     Active Substance: BAMLANIVIMAB\ETESEVIMAB
     Indication: SARS-CoV-2 test positive
     Dates: start: 20211224

REACTIONS (8)
  - Flushing [None]
  - Dyspnoea [None]
  - Chest discomfort [None]
  - Arthralgia [None]
  - Pain in extremity [None]
  - Pain [None]
  - Dysstasia [None]
  - Mobility decreased [None]

NARRATIVE: CASE EVENT DATE: 20211224
